FAERS Safety Report 20021135 (Version 2)
Quarter: 2021Q4

REPORT INFORMATION
  Report Type: Spontaneous
  Country: CH (occurrence: CH)
  Receive Date: 20211101
  Receipt Date: 20211110
  Transmission Date: 20220303
  Serious: Yes (Death)
  Sender: FDA-Public Use
  Company Number: CH-BAYER-2021A241159

PATIENT
  Age: 70 Year
  Sex: Male

DRUGS (1)
  1. VITRAKVI [Suspect]
     Active Substance: LAROTRECTINIB
     Indication: Pancreatic carcinoma
     Dosage: 50 MG, BID
     Dates: start: 20211011, end: 202110

REACTIONS (1)
  - Pancreatic carcinoma [Fatal]
